FAERS Safety Report 8311420-7 (Version None)
Quarter: 2012Q1

REPORT INFORMATION
  Report Type: 
  Country: None (occurrence: None)
  Receive Date: 20120315
  Receipt Date: 20101116
  Transmission Date: 20120608
  Serious: No
  Sender: FDA-Public Use
  Company Number: PHHY2010US76618

PATIENT
  Age: 58 Year
  Sex: Female

DRUGS (11)
  1. DETROL [Concomitant]
  2. CRESTOR [Concomitant]
  3. TOPIRAMATE [Concomitant]
  4. GILENYA [Suspect]
     Indication: MULTIPLE SCLEROSIS
     Dosage: 0.5 MG, QD, ORAL
     Route: 048
     Dates: start: 20101103
  5. EFFEXOR [Concomitant]
  6. LEVOTHYROXINE SODIUM [Concomitant]
  7. ATENOLOL [Concomitant]
  8. ZOLPIDEM [Concomitant]
  9. HYDROCODONE BITARTRATE [Concomitant]
  10. TRICOR [Concomitant]
  11. ESTRADIOL [Concomitant]

REACTIONS (2)
  - FATIGUE [None]
  - HYPERSOMNIA [None]
